FAERS Safety Report 23384185 (Version 1)
Quarter: 2024Q1

REPORT INFORMATION
  Report Type: Spontaneous
  Country: US (occurrence: None)
  Receive Date: 20240109
  Receipt Date: 20240109
  Transmission Date: 20240410
  Serious: No
  Sender: FDA-Public Use
  Company Number: 2024A002504

PATIENT
  Age: 58 Year
  Sex: Male

DRUGS (1)
  1. AIRSUPRA [Suspect]
     Active Substance: ALBUTEROL SULFATE\BUDESONIDE
     Indication: Bronchospasm
     Dosage: AS REQUIRED
     Route: 055
     Dates: start: 20231228, end: 20231228

REACTIONS (1)
  - Sinus headache [Recovered/Resolved]

NARRATIVE: CASE EVENT DATE: 20231228
